FAERS Safety Report 15531211 (Version 2)
Quarter: 2018Q4

REPORT INFORMATION
  Report Type: Spontaneous
  Country: US (occurrence: US)
  Receive Date: 20181019
  Receipt Date: 20181022
  Transmission Date: 20190205
  Serious: Yes (Hospitalization, Other)
  Sender: FDA-Public Use
  Company Number: US-DRREDDYS-USA/USA/18/0104805

PATIENT
  Age: 74 Year
  Sex: Male

DRUGS (1)
  1. ATORVASTATIN [Suspect]
     Active Substance: ATORVASTATIN
     Indication: PRODUCT USED FOR UNKNOWN INDICATION
     Dosage: THE PATIENT HAD BEEN ON DAILY ATORVASTATIN FOR 10 YEARS
     Route: 065

REACTIONS (5)
  - Dysphagia [Unknown]
  - Immune-mediated necrotising myopathy [Recovering/Resolving]
  - Muscular weakness [Unknown]
  - Dyspnoea [Unknown]
  - Fall [Unknown]
